FAERS Safety Report 8773193 (Version 2)
Quarter: 2012Q4

REPORT INFORMATION
  Report Type: 
  Country: DE (occurrence: DE)
  Receive Date: 20120908
  Receipt Date: 20121012
  Transmission Date: 20130627
  Serious: Yes (Disabling, Other)
  Sender: FDA-Public Use
  Company Number: DE-B.I. PHARMACEUTICALS,INC./RIDGEFIELD-2012-DE-02089DE

PATIENT
  Age: 74 Year
  Sex: Male
  Weight: 72 kg

DRUGS (8)
  1. PRADAXA [Suspect]
     Indication: ATRIAL FIBRILLATION
     Dosage: 240 mg
     Route: 048
     Dates: start: 20120525
  2. PRADAXA [Suspect]
     Dosage: 220 mg
     Route: 048
     Dates: start: 20120604, end: 20120820
  3. CANDESARTAN [Concomitant]
     Indication: HYPERTENSION
     Dosage: 32 mg
     Route: 048
     Dates: start: 20101202
  4. VELMETIA [Concomitant]
     Indication: DIABETES MELLITUS
     Dosage: 1 anz
     Route: 048
     Dates: start: 20101202
  5. INEGY [Concomitant]
     Indication: CORONARY ARTERY DISEASE
     Dosage: 1 anz
     Route: 048
     Dates: start: 2010
  6. INEGY [Concomitant]
     Indication: HYPERLIPIDAEMIA
  7. BISOPROLOL [Concomitant]
     Indication: HYPERTENSION
     Dosage: 7.5 mg
     Route: 048
     Dates: start: 20080117
  8. BISOPROLOL [Concomitant]
     Indication: CORONARY ARTERY DISEASE

REACTIONS (4)
  - Hepatic enzyme abnormal [Not Recovered/Not Resolved]
  - Platelet count decreased [Not Recovered/Not Resolved]
  - Blood bilirubin increased [Not Recovered/Not Resolved]
  - Hepatitis [Unknown]
